FAERS Safety Report 4421179-1 (Version None)
Quarter: 2004Q3

REPORT INFORMATION
  Report Type: 
  Country: None (occurrence: None)
  Receive Date: 20040804
  Receipt Date: 20040720
  Transmission Date: 20050211
  Serious: Yes (Other)
  Sender: FDA-Public Use
  Company Number: B0340282A

PATIENT
  Sex: 0

DRUGS (4)
  1. EPIVIR [Suspect]
     Indication: HIV INFECTION
     Dosage: PER DAY / ORAL
     Route: 048
     Dates: start: 19970601
  2. METHADONE HYDROCHLORIDE (FORMULATION UNKNOWN) (METHADONE HYDROCHLORIDE [Suspect]
     Indication: DRUG ABUSER
     Dosage: SEE DOSAGE TEXT
  3. DIDANOSINE (FORMULATION UNKNOWN) (DIDANOSINE) [Suspect]
     Indication: HIV INFECTION
     Dosage: PER DAY / ORAL
     Route: 048
     Dates: start: 19970601
  4. NEVIRAPINE (FORMULATION UNKNOWN) (NEVIRAPINE) [Suspect]
     Indication: HIV INFECTION
     Dosage: PER DAY / ORAL
     Route: 048
     Dates: start: 19970601

REACTIONS (1)
  - LIVER FUNCTION TEST ABNORMAL [None]
